FAERS Safety Report 8957234 (Version 1)
Quarter: 2012Q4

REPORT INFORMATION
  Report Type: Spontaneous
  Country: DK (occurrence: None)
  Receive Date: 20121130
  Receipt Date: 20121130
  Transmission Date: 20130627
  Serious: Yes (Other)
  Sender: FDA-Public Use
  Company Number: 2012MA013650

PATIENT
  Age: 69 Year
  Sex: Male

DRUGS (17)
  1. FERROUS SULFATE [Suspect]
     Indication: ANAEMIA
     Route: 042
     Dates: start: 20121011, end: 20121025
  2. LOVENOX [Concomitant]
  3. MIRCERA [Concomitant]
  4. NEORECORMON [Concomitant]
  5. UN ALPHA [Concomitant]
  6. AMLOR [Concomitant]
  7. COVERSYL [Concomitant]
  8. LOXEN [Concomitant]
  9. LASILIX [Concomitant]
  10. KAYEXALATE [Concomitant]
  11. FORADIL [Concomitant]
  12. SPIRIVA [Concomitant]
  13. PARACETAMOL [Concomitant]
  14. LAROXYL [Concomitant]
  15. ATARAX [Concomitant]
  16. MUPIDERM [Concomitant]
  17. CALCIDOSE VITAMINE D3 [Concomitant]

REACTIONS (6)
  - Convulsion [None]
  - Hypotension [None]
  - Hyperventilation [None]
  - Respiratory acidosis [None]
  - Malaise [None]
  - Chest pain [None]
